FAERS Safety Report 9848723 (Version 1)
Quarter: 2014Q1

REPORT INFORMATION
  Report Type: Spontaneous
  Country: US (occurrence: US)
  Receive Date: 20140128
  Receipt Date: 20140128
  Transmission Date: 20141002
  Serious: No
  Sender: FDA-Public Use
  Company Number: US-BAYER-2014-014307

PATIENT
  Sex: Female

DRUGS (4)
  1. ALEVE TABLET [Suspect]
     Dosage: 2 DF AT 8 AM AND 2 DF AT 10PM
  2. LYRICA [Concomitant]
  3. CYMBALTA [Concomitant]
  4. FENTANYL [Concomitant]
     Dosage: UNK,EVERY 72 HOURS

REACTIONS (2)
  - Headache [None]
  - Extra dose administered [None]
